FAERS Safety Report 7334346-4 (Version None)
Quarter: 2011Q1

REPORT INFORMATION
  Report Type: 
  Country: None (occurrence: None)
  Receive Date: 20110307
  Receipt Date: 20101201
  Transmission Date: 20110831
  Serious: No
  Sender: FDA-Public Use
  Company Number: US-KINGPHARMUSA00001-K201001468

PATIENT
  Age: 30 Year
  Sex: Male

DRUGS (2)
  1. EMBEDA [Suspect]
     Dosage: 30 MG, Q12H
  2. EMBEDA [Suspect]
     Dosage: 30 MG, Q12H

REACTIONS (1)
  - HEADACHE [None]
